FAERS Safety Report 9616826 (Version 1)
Quarter: 2013Q4

REPORT INFORMATION
  Report Type: Spontaneous
  Country: US (occurrence: US)
  Receive Date: 20131011
  Receipt Date: 20131011
  Transmission Date: 20140711
  Serious: Yes (Other)
  Sender: FDA-Public Use
  Company Number: US-JNJFOC-20131002359

PATIENT
  Sex: Male
  Weight: 78.93 kg

DRUGS (15)
  1. XARELTO [Suspect]
     Indication: CARDIAC FAILURE
     Route: 048
     Dates: start: 201210
  2. XARELTO [Suspect]
     Indication: ATRIAL FIBRILLATION
     Route: 048
     Dates: start: 201210
  3. XARELTO [Suspect]
     Indication: CEREBROVASCULAR ACCIDENT PROPHYLAXIS
     Route: 048
     Dates: start: 201210
  4. SOTALOL [Concomitant]
     Indication: CARDIAC DISORDER
     Route: 048
     Dates: start: 201205
  5. PRILOSEC [Concomitant]
     Indication: GASTRIC DISORDER
     Route: 065
     Dates: start: 201205
  6. ALDACTONE [Concomitant]
     Indication: DIURETIC THERAPY
     Route: 048
     Dates: start: 201205
  7. LISINOPRIL [Concomitant]
     Indication: BLOOD PRESSURE ABNORMAL
     Route: 048
     Dates: start: 201205
  8. DIGOXIN [Concomitant]
     Indication: CARDIAC FAILURE
     Route: 048
     Dates: start: 201205
  9. LASIX [Concomitant]
     Indication: DIURETIC THERAPY
     Route: 048
     Dates: start: 201205
  10. SIMVASTATIN [Concomitant]
     Indication: BLOOD CHOLESTEROL ABNORMAL
     Route: 048
     Dates: start: 201205
  11. ASPIRIN [Concomitant]
     Indication: DRUG THERAPY
     Route: 048
     Dates: start: 201205
  12. CELEXA [Concomitant]
     Indication: ANTIDEPRESSANT THERAPY
     Route: 048
  13. KLONOPIN [Concomitant]
     Indication: DEPRESSION
     Route: 048
  14. AMBIEN [Concomitant]
     Indication: SLEEP APNOEA SYNDROME
     Route: 048
  15. IMDUR [Concomitant]
     Indication: NITRATE COMPOUND THERAPY
     Route: 065

REACTIONS (4)
  - Post procedural complication [Not Recovered/Not Resolved]
  - Malaise [Not Recovered/Not Resolved]
  - International normalised ratio increased [Not Recovered/Not Resolved]
  - Pain [Not Recovered/Not Resolved]
